FAERS Safety Report 16721519 (Version 1)
Quarter: 2019Q3

REPORT INFORMATION
  Report Type: Other
  Country: US (occurrence: US)
  Receive Date: 20190820
  Receipt Date: 20190820
  Transmission Date: 20191005
  Serious: No
  Sender: FDA-Public Use
  Company Number: US-BIODELIVERY SCIENCES INTERNATIONAL-2018BDSI0489

PATIENT
  Sex: Female
  Weight: 72.64 kg

DRUGS (3)
  1. HYDROXYZINE [Concomitant]
     Active Substance: HYDROXYZINE HYDROCHLORIDE
     Indication: PANIC ATTACK
     Route: 048
  2. OXYCODONE [Concomitant]
     Active Substance: OXYCODONE
     Indication: PAIN
     Route: 048
  3. BUPRENORPHINE. [Suspect]
     Active Substance: BUPRENORPHINE
     Indication: PAIN
     Route: 002
     Dates: start: 20180824, end: 20180827

REACTIONS (9)
  - Pain [Unknown]
  - Pain in extremity [Recovering/Resolving]
  - Restless legs syndrome [Recovering/Resolving]
  - Feeling of body temperature change [Recovering/Resolving]
  - Drug ineffective [Unknown]
  - Tremor [Recovering/Resolving]
  - Nausea [Recovering/Resolving]
  - Feeling abnormal [Recovering/Resolving]
  - Insomnia [Recovering/Resolving]

NARRATIVE: CASE EVENT DATE: 201808
